FAERS Safety Report 13302191 (Version 1)
Quarter: 2017Q1

REPORT INFORMATION
  Report Type: Spontaneous
  Country: JP (occurrence: JP)
  Receive Date: 20170307
  Receipt Date: 20170307
  Transmission Date: 20170428
  Serious: Yes (Congenital Anomaly, Other)
  Sender: FDA-Public Use
  Company Number: JP-FERRINGPH-2017FE00904

PATIENT

DRUGS (1)
  1. MENOTROPHIN [Suspect]
     Active Substance: MENOTROPINS
     Indication: OVULATION INDUCTION
     Route: 064

REACTIONS (4)
  - Cardiomegaly [Not Recovered/Not Resolved]
  - Autism [Not Recovered/Not Resolved]
  - Cytogenetic abnormality [Not Recovered/Not Resolved]
  - Growth accelerated [Not Recovered/Not Resolved]
